FAERS Safety Report 5705536-9 (Version None)
Quarter: 2008Q2

REPORT INFORMATION
  Report Type: 
  Country: None (occurrence: None)
  Receive Date: 20080415
  Receipt Date: 20080403
  Transmission Date: 20081010
  Serious: Yes (Hospitalization, Other)
  Sender: FDA-Public Use
  Company Number: US-ROCHE-466960

PATIENT
  Sex: Female
  Weight: 56.7 kg

DRUGS (5)
  1. ACCUTANE [Suspect]
     Route: 048
     Dates: start: 19950118, end: 19950401
  2. ACCUTANE [Suspect]
     Route: 048
     Dates: start: 19950901, end: 19951101
  3. ORTHO-NOVUM NOS [Concomitant]
     Indication: CONTRACEPTION
     Dosage: DRUG REPORTED AS ETHINYL ESTRADIOL/NORETHINDRONE (ORTHO NOVUM).
     Route: 048
  4. ORTHO-NOVUM NOS [Concomitant]
     Dosage: DRUG REPORTED AS ETHINYL ESTRADIOL/NORETHINDRONE (ORTHO NOVUM).
     Route: 048
  5. ORTHO-NOVUM NOS [Concomitant]
     Dosage: DRUG REPORTED AS ETHINYL ESTRADIOL/NORETHINDRONE (ORTHO NOVUM).
     Route: 048

REACTIONS (11)
  - ANXIETY [None]
  - CERVICAL DYSPLASIA [None]
  - COLITIS ULCERATIVE [None]
  - CROHN'S DISEASE [None]
  - DEPRESSION [None]
  - FEMALE GENITAL TRACT FISTULA [None]
  - INFLAMMATORY BOWEL DISEASE [None]
  - INSOMNIA [None]
  - IRON DEFICIENCY ANAEMIA [None]
  - LARGE INTESTINE PERFORATION [None]
  - PERINEAL ABSCESS [None]
